FAERS Safety Report 16243273 (Version 3)
Quarter: 2019Q2

REPORT INFORMATION
  Report Type: Spontaneous
  Country: GB (occurrence: GB)
  Receive Date: 20190426
  Receipt Date: 20190509
  Transmission Date: 20190711
  Serious: Yes (Hospitalization)
  Sender: FDA-Public Use
  Company Number: GB-PFIZER INC-2019178295

PATIENT
  Sex: Female

DRUGS (1)
  1. PREGABALIN. [Suspect]
     Active Substance: PREGABALIN
     Indication: SUBSTANCE USE
     Dosage: UNK
     Dates: start: 20190412

REACTIONS (1)
  - Substance use [Unknown]

NARRATIVE: CASE EVENT DATE: 20190412
